FAERS Safety Report 12405958 (Version 1)
Quarter: 2016Q2

REPORT INFORMATION
  Report Type: Spontaneous
  Country: US (occurrence: US)
  Receive Date: 20160526
  Receipt Date: 20160526
  Transmission Date: 20160815
  Serious: Yes (Other)
  Sender: FDA-Public Use
  Company Number: US-JNJCP-30000337976

PATIENT
  Sex: Female
  Weight: 68 kg

DRUGS (1)
  1. NEUTROGENA BLACKHEAD ELIMINATING DAILY SCRUB [Suspect]
     Active Substance: SALICYLIC ACID
     Indication: REMOVAL OF INERT MATTER FROM SKIN OR SUBCUTANEOUS TISSUE
     Dosage: PEA SIZE AMOUNT, ONE TIME DAILY
     Route: 061
     Dates: start: 20160508, end: 20160511

REACTIONS (1)
  - Burns third degree [Not Recovered/Not Resolved]

NARRATIVE: CASE EVENT DATE: 20160509
